FAERS Safety Report 6064422-8 (Version None)
Quarter: 2009Q1

REPORT INFORMATION
  Report Type: 
  Country: None (occurrence: None)
  Receive Date: 20090203
  Receipt Date: 20090203
  Transmission Date: 20090719
  Serious: Yes (Other)
  Sender: FDA-Public Use
  Company Number: None

PATIENT
  Age: 3 Year
  Sex: Male
  Weight: 17.2367 kg

DRUGS (2)
  1. ULTRASE MT12 [Suspect]
     Indication: CYSTIC FIBROSIS
     Dosage: 2-8 PILLS PER MEAL A SNACK PO
     Route: 048
     Dates: start: 20010601, end: 20040501
  2. ULTRASE MT12 [Suspect]
     Indication: CYSTIC FIBROSIS
     Dosage: 4 PILLS PER MEAL AND SNACK PO
     Route: 048
     Dates: start: 20080308, end: 20090203

REACTIONS (7)
  - ABDOMINAL PAIN UPPER [None]
  - ANOREXIA [None]
  - ARTHRALGIA [None]
  - DIARRHOEA [None]
  - OVERDOSE [None]
  - WEIGHT DECREASED [None]
  - WEIGHT GAIN POOR [None]
